FAERS Safety Report 9000628 (Version 1)
Quarter: 2012Q4

REPORT INFORMATION
  Report Type: Spontaneous
  Country: US (occurrence: None)
  Receive Date: 20121226
  Receipt Date: 20121226
  Transmission Date: 20130627
  Serious: Yes (Death, Hospitalization)
  Sender: FDA-Public Use
  Company Number: TPA2012A10036

PATIENT
  Age: 90 Year
  Sex: Female

DRUGS (6)
  1. ADENURIC [Suspect]
     Indication: GOUT
     Dosage: 80 mg (80 mg, 1 in 1 D)
     Route: 048
     Dates: start: 20121113
  2. ENALAPRIL (ENALAPRIL [Concomitant]
  3. SIMVASTATIN (SIMVASTATIN) [Concomitant]
  4. ASS (ACETYLSALICYLIC ACID) [Concomitant]
  5. FUROSEMID (FUROSEMIDE) [Concomitant]
  6. METOHEXAL (METOPROLOL TARTRATE) [Concomitant]

REACTIONS (1)
  - Cardiac failure [None]
